FAERS Safety Report 5048814-1 (Version None)
Quarter: 2006Q3

REPORT INFORMATION
  Report Type: 
  Country: None (occurrence: None)
  Receive Date: 20060706
  Receipt Date: 20060629
  Transmission Date: 20061208
  Serious: Yes (Life-Threatening, Hospitalization)
  Sender: FDA-Public Use
  Company Number: TCI2006A02286

PATIENT
  Age: 77 Year
  Sex: Male

DRUGS (10)
  1. LEUPROLIDE ACETATE [Suspect]
     Indication: PROSTATE CANCER
     Dosage: 1 IN 28 D SUBCUTANEOUS
     Route: 058
     Dates: start: 20060405, end: 20060501
  2. CHLORMADINONE ACETATE TAB [Suspect]
     Indication: PROSTATE CANCER
     Dosage: 100 MG (50 MG, 2 IN 1 D), ORAL
     Route: 048
     Dates: start: 20060403, end: 20060523
  3. ALLOPURINOL TAB [Suspect]
     Indication: GOUT
     Dosage: PER ORAL
     Route: 048
     Dates: start: 20060301, end: 20060523
  4. URIEF (SILODOSIN) [Concomitant]
  5. LASIX [Concomitant]
  6. ASPIRIN [Concomitant]
  7. NORVASC [Concomitant]
  8. NITOROL R (TABLETS) [Concomitant]
  9. MAGNEISUM OXIDE (PREPARATION FOR ORAL USE (NOS)) [Concomitant]
  10. NICORANDIS (NICORANDIL) (TABLETS) [Concomitant]

REACTIONS (3)
  - CHOLESTASIS [None]
  - JAUNDICE [None]
  - LIVER DISORDER [None]
